FAERS Safety Report 9431400 (Version 2)
Quarter: 2013Q4

REPORT INFORMATION
  Report Type: Spontaneous
  Country: GB (occurrence: GB)
  Receive Date: 20130730
  Receipt Date: 20131025
  Transmission Date: 20140711
  Serious: Yes (Other)
  Sender: FDA-Public Use
  Company Number: GB-MYLANLABS-2013S1015833

PATIENT
  Age: 22 Year
  Sex: Female
  Weight: 64.5 kg

DRUGS (1)
  1. ISOTRETINOIN [Suspect]
     Indication: ACNE
     Route: 048
     Dates: start: 20130707, end: 20130709

REACTIONS (1)
  - Exposure during pregnancy [Recovered/Resolved]
